FAERS Safety Report 7787778-4 (Version None)
Quarter: 2011Q3

REPORT INFORMATION
  Report Type: 
  Country: None (occurrence: None)
  Receive Date: 20110929
  Receipt Date: 20110922
  Transmission Date: 20111222
  Serious: Yes (Death, Other)
  Sender: FDA-Public Use
  Company Number: GB-GILEAD-E2B_00001518

PATIENT

DRUGS (5)
  1. EMTRIVA [Suspect]
     Indication: ASYMPTOMATIC HIV INFECTION
  2. EFAVIRENZ [Suspect]
     Indication: ASYMPTOMATIC HIV INFECTION
     Route: 048
     Dates: start: 20110803, end: 20110813
  3. VIREAD [Suspect]
     Indication: ASYMPTOMATIC HIV INFECTION
  4. COMBIVIR [Concomitant]
  5. NEVIRAPINE [Concomitant]

REACTIONS (3)
  - AGITATION [None]
  - MALAISE [None]
  - CONFUSIONAL STATE [None]
